FAERS Safety Report 4561142-3 (Version None)
Quarter: 2005Q1

REPORT INFORMATION
  Report Type: 
  Country: None (occurrence: None)
  Receive Date: 20050124
  Receipt Date: 20041230
  Transmission Date: 20050727
  Serious: Yes (Other)
  Sender: FDA-Public Use
  Company Number: 2004-12-1430

PATIENT
  Age: 16 Year
  Sex: Female
  Weight: 50 kg

DRUGS (4)
  1. DOXORUBICIN HCL [Suspect]
     Indication: BONE SARCOMA
     Dosage: 508 MG (CUM) INTRAVENOUS
     Route: 042
     Dates: start: 20010807, end: 20020721
  2. METHOTREXATE INJECTABLE [Suspect]
     Indication: BONE SARCOMA
     Dosage: 146.4G (CUM) INTRAVENOUS
     Route: 042
     Dates: start: 20010807, end: 20020721
  3. IFOSFAMIDE INJECTABLE [Suspect]
     Indication: BONE SARCOMA
     Dosage: 24.8G (CUM) INTRAVENOUS
     Route: 042
     Dates: start: 20010807, end: 20020721
  4. CISPLATIN [Suspect]
     Indication: BONE SARCOMA
     Dosage: 508MG (CUM) INTRAVENOUS
     Route: 042
     Dates: start: 20010807, end: 20020721

REACTIONS (4)
  - BETA 2 MICROGLOBULIN INCREASED [None]
  - CAVERNOUS SINUS THROMBOSIS [None]
  - CEREBROVASCULAR ACCIDENT [None]
  - DEAFNESS TRANSITORY [None]
